FAERS Safety Report 5071302-3 (Version None)
Quarter: 2006Q3

REPORT INFORMATION
  Report Type: 
  Country: None (occurrence: None)
  Receive Date: 20060804
  Receipt Date: 20060714
  Transmission Date: 20061208
  Serious: Yes (Other)
  Sender: FDA-Public Use
  Company Number: JP-ROCHE-456275

PATIENT
  Age: 14 Year
  Sex: Male
  Weight: 57 kg

DRUGS (8)
  1. TAMIFLU [Suspect]
     Route: 048
     Dates: start: 20060625, end: 20060625
  2. TAMIFLU [Suspect]
     Route: 048
     Dates: start: 20060626, end: 20060629
  3. TAMIFLU [Suspect]
     Route: 048
     Dates: start: 20060630, end: 20060630
  4. CALONAL [Concomitant]
     Dates: start: 20060630
  5. MUCODYNE [Concomitant]
     Dosage: DOSE FORM REPORTED AS ORAL FORMULATION (NOT OTHERWISE SPECIFIED).
     Route: 048
     Dates: start: 20060625, end: 20060730
  6. ASVERIN [Concomitant]
     Dosage: DOSE FORM REPORTED AS ORAL FORMULATION (NOT OTHERWISE SPECIFIED).
     Route: 048
     Dates: start: 20060629, end: 20060630
  7. TRANSAMIN [Concomitant]
     Dosage: DOSE FORM REPORTED AS ORAL FORMULATION (NOT OTHERWISE SPECIFIED).
     Route: 048
     Dates: start: 20060629, end: 20060630
  8. ACETAMINOPHEN [Concomitant]
     Dosage: DOSE FORM REPORTED AS: FINE GRANULE. GENERIC NAME REPORTED AS: ACETAMINOPHEN.
     Route: 048
     Dates: start: 20060625, end: 20060628

REACTIONS (1)
  - VISION BLURRED [None]
